FAERS Safety Report 6830826-6 (Version None)
Quarter: 2010Q3

REPORT INFORMATION
  Report Type: 
  Country: None (occurrence: None)
  Receive Date: 20100709
  Receipt Date: 20100709
  Transmission Date: 20110219
  Serious: Yes (Hospitalization)
  Sender: FDA-Public Use
  Company Number: None

PATIENT
  Age: 91 Year
  Sex: Female

DRUGS (1)
  1. METHADONE HCL [Suspect]
     Indication: PAIN
     Dosage: 3 MG BID PO
     Route: 048
     Dates: start: 20100416, end: 20100427

REACTIONS (2)
  - DELIRIUM [None]
  - DRUG LEVEL INCREASED [None]
